FAERS Safety Report 13184485 (Version 4)
Quarter: 2021Q1

REPORT INFORMATION
  Report Type: Report from Study
  Country: DE (occurrence: DE)
  Receive Date: 20170203
  Receipt Date: 20210212
  Transmission Date: 20210419
  Serious: Yes (Death, Life-Threatening, Hospitalization, Other)
  Sender: FDA-Public Use
  Company Number: DE-EISAI MEDICAL RESEARCH-EC-2016-022954

PATIENT
  Age: 63 Year
  Sex: Female
  Weight: 55 kg

DRUGS (2)
  1. HALAVEN [Suspect]
     Active Substance: ERIBULIN MESYLATE
     Indication: BREAST CANCER METASTATIC
     Route: 041
     Dates: start: 20161028, end: 20161216
  2. HALAVEN [Suspect]
     Active Substance: ERIBULIN MESYLATE
     Route: 041
     Dates: start: 20170111, end: 20170111

REACTIONS (9)
  - Neutropenia [Recovered/Resolved]
  - Vertigo [Not Recovered/Not Resolved]
  - Stomatitis [Recovered/Resolved]
  - Metastases to central nervous system [Unknown]
  - General physical health deterioration [Fatal]
  - Fatigue [Unknown]
  - Anaemia [Recovered/Resolved]
  - Leukopenia [Recovered/Resolved]
  - Neuropathy peripheral [Unknown]

NARRATIVE: CASE EVENT DATE: 20161104
